FAERS Safety Report 5373636-1 (Version None)
Quarter: 2007Q2

REPORT INFORMATION
  Report Type: 
  Country: None (occurrence: None)
  Receive Date: 20070627
  Receipt Date: 20050919
  Transmission Date: 20071010
  Serious: Yes (Other)
  Sender: FDA-Public Use
  Company Number: 417063

PATIENT
  Age: 77 Year
  Sex: Male
  Weight: 94.3 kg

DRUGS (1)
  1. XELODA [Suspect]
     Indication: COLORECTAL CANCER
     Dosage: 2150 MG 2 PER DAY ORAL
     Route: 048
     Dates: start: 20041214, end: 20050128

REACTIONS (2)
  - ERYTHEMA [None]
  - PALMAR-PLANTAR ERYTHRODYSAESTHESIA SYNDROME [None]
